FAERS Safety Report 24742656 (Version 1)
Quarter: 2024Q4

REPORT INFORMATION
  Report Type: Spontaneous
  Country: US (occurrence: US)
  Receive Date: 20241217
  Receipt Date: 20241217
  Transmission Date: 20250114
  Serious: Yes (Hospitalization)
  Sender: AMGEN
  Company Number: US-AMGEN-USASP2024243017

PATIENT
  Age: 58 Year
  Sex: Female

DRUGS (1)
  1. PREDNISONE [Suspect]
     Active Substance: PREDNISONE
     Indication: Pancreatic atrophy
     Dosage: UNK UNK, QD
     Route: 065

REACTIONS (2)
  - Insulinoma [Unknown]
  - Off label use [Unknown]
